FAERS Safety Report 22389023 (Version 1)
Quarter: 2023Q2

REPORT INFORMATION
  Report Type: Spontaneous
  Country: US (occurrence: US)
  Receive Date: 20230531
  Receipt Date: 20230531
  Transmission Date: 20230722
  Serious: Yes (Other)
  Sender: FDA-Public Use
  Company Number: US-JUBILANT CADISTA PHARMACEUTICALS-2023JUB00203

PATIENT
  Age: 35 Year
  Sex: Male

DRUGS (14)
  1. METHYLPREDNISOLONE [Suspect]
     Active Substance: METHYLPREDNISOLONE
     Indication: Immunosuppressant drug therapy
     Dosage: SEVERAL COURSES OF PULSE STEROIDS
     Route: 042
  2. PREDNISONE [Suspect]
     Active Substance: PREDNISONE
     Indication: Immunosuppressant drug therapy
  3. PREDNISONE [Suspect]
     Active Substance: PREDNISONE
     Dosage: INCREASED DOSE
  4. PREDNISONE [Suspect]
     Active Substance: PREDNISONE
     Dosage: 100 MG
  5. MYCOPHENOLATE MOFETIL [Suspect]
     Active Substance: MYCOPHENOLATE MOFETIL
     Indication: Immunosuppressant drug therapy
     Dosage: INCREASED DOSE
  6. MYCOPHENOLATE MOFETIL [Suspect]
     Active Substance: MYCOPHENOLATE MOFETIL
     Dosage: UNK
  7. MYCOPHENOLATE MOFETIL [Suspect]
     Active Substance: MYCOPHENOLATE MOFETIL
     Dosage: 1500 MG, 12X/DAY
  8. THYMOCYTE IMMUNE GLOBULIN NOS [Suspect]
     Active Substance: THYMOCYTE IMMUNE GLOBULIN NOS
     Indication: Immunosuppressant drug therapy
     Dosage: (CUMULATIVE DOSE: 4 MG/KG) 4 MG/KG
  9. BASILIXIMAB [Suspect]
     Active Substance: BASILIXIMAB
     Indication: Immunosuppressant drug therapy
  10. TACROLIMUS [Suspect]
     Active Substance: TACROLIMUS
     Indication: Immunosuppressant drug therapy
     Dosage: INCREASED DOSE
  11. TACROLIMUS [Suspect]
     Active Substance: TACROLIMUS
     Dosage: UNK
  12. FLUCONAZOLE [Concomitant]
     Active Substance: FLUCONAZOLE
     Indication: Pneumonia cryptococcal
  13. FLUCONAZOLE [Concomitant]
     Active Substance: FLUCONAZOLE
     Indication: Pulmonary mass
  14. MILRINONE [Concomitant]
     Active Substance: MILRINONE
     Indication: Cardiomyopathy

REACTIONS (7)
  - Gastroenteritis Escherichia coli [Unknown]
  - Gastroenteritis Escherichia coli [Unknown]
  - Cerebral nocardiosis [Unknown]
  - Nocardiosis [Unknown]
  - Pulmonary nocardiosis [Unknown]
  - Gastroenteritis Escherichia coli [Unknown]
  - Gastroenteritis norovirus [Unknown]
